FAERS Safety Report 8066743-6 (Version None)
Quarter: 2012Q1

REPORT INFORMATION
  Report Type: 
  Country: None (occurrence: None)
  Receive Date: 20120124
  Receipt Date: 20120117
  Transmission Date: 20120608
  Serious: Yes (Hospitalization)
  Sender: FDA-Public Use
  Company Number: AU-B.I. PHARMACEUTICALS,INC./RIDGEFIELD-2011-AU-00804AU

PATIENT
  Age: 93 Year
  Sex: Female

DRUGS (7)
  1. PRADAXA [Suspect]
     Indication: ATRIAL FIBRILLATION
  2. FOSAMAX [Concomitant]
  3. METOPROLOL TARTRATE [Concomitant]
  4. LEVOTHYROXINE SODIUM [Concomitant]
  5. PRAVASTATIN [Concomitant]
  6. PRADAXA [Suspect]
     Indication: CEREBROVASCULAR ACCIDENT PROPHYLAXIS
     Dosage: 220 MG
     Dates: start: 20110608, end: 20110720
  7. NORVASC [Concomitant]

REACTIONS (5)
  - CARDIAC FAILURE [None]
  - ANAEMIA [None]
  - RENAL IMPAIRMENT [None]
  - DYSPNOEA [None]
  - HAEMATOCHEZIA [None]
